FAERS Safety Report 13990676 (Version 13)
Quarter: 2022Q1

REPORT INFORMATION
  Report Type: Spontaneous
  Country: US (occurrence: US)
  Receive Date: 20170920
  Receipt Date: 20220210
  Transmission Date: 20220423
  Serious: No
  Sender: FDA-Public Use
  Company Number: US-PFIZER INC-2017403277

PATIENT
  Age: 78 Year
  Sex: Male
  Weight: 116 kg

DRUGS (5)
  1. LYRICA [Suspect]
     Active Substance: PREGABALIN
     Indication: Neuropathy peripheral
     Dosage: 300 MG, TWICE A DAY (300MG IN THE MORNING AND 300MG AT NIGHT)
     Route: 048
  2. LYRICA [Suspect]
     Active Substance: PREGABALIN
     Indication: Diabetic complication
     Dosage: 600 MG, DAILY (100 MG 6 PER DAY)
     Route: 048
  3. LYRICA [Suspect]
     Active Substance: PREGABALIN
     Indication: Nerve injury
     Dosage: 200 MG, 2X/DAY
     Route: 048
  4. LYRICA [Suspect]
     Active Substance: PREGABALIN
     Indication: Neuralgia
  5. LYRICA [Suspect]
     Active Substance: PREGABALIN
     Indication: Neuritis

REACTIONS (5)
  - Therapeutic product effect incomplete [Unknown]
  - Tremor [Unknown]
  - Illness [Unknown]
  - Dyspnoea [Unknown]
  - Mental disorder [Unknown]
